FAERS Safety Report 9716883 (Version 2)
Quarter: 2013Q4

REPORT INFORMATION
  Report Type: Spontaneous
  Country: RU (occurrence: RU)
  Receive Date: 20131127
  Receipt Date: 20131127
  Transmission Date: 20140711
  Serious: Yes (Death, Life-Threatening, Other)
  Sender: FDA-Public Use
  Company Number: RU-ABBVIE-13P-251-1148555-00

PATIENT
  Age: 61 Year
  Sex: Male
  Weight: 57 kg

DRUGS (10)
  1. HUMIRA [Suspect]
     Indication: CROHN^S DISEASE
     Dosage: FIRST DOSE
     Dates: start: 20130617, end: 20130617
  2. HUMIRA [Suspect]
     Indication: CROHN^S DISEASE
     Dosage: THE NEXT DAY
     Dates: start: 20130618, end: 20130618
  3. HUMIRA [Suspect]
     Indication: ENTEROCOLITIS
     Dosage: IN TWO WEEKS
  4. HUMIRA [Suspect]
     Indication: ILEAL ULCER
     Dates: end: 20130909
  5. HUMIRA [Suspect]
     Indication: ANASTOMOTIC ULCER
  6. PREDNISOLONE [Concomitant]
     Indication: PRODUCT USED FOR UNKNOWN INDICATION
     Dates: start: 20130906, end: 20130916
  7. METRONIDAZOLE [Concomitant]
     Indication: PRODUCT USED FOR UNKNOWN INDICATION
     Dates: start: 20130906, end: 20130916
  8. CIPROFLOXACIN [Concomitant]
     Indication: PRODUCT USED FOR UNKNOWN INDICATION
     Dates: start: 20130906, end: 20130916
  9. CEFABOL [Concomitant]
     Indication: PRODUCT USED FOR UNKNOWN INDICATION
     Dates: start: 20130906, end: 20130916
  10. FLUCONAZOLE [Concomitant]
     Indication: PRODUCT USED FOR UNKNOWN INDICATION
     Dates: start: 20130911, end: 20130916

REACTIONS (10)
  - Cardiovascular insufficiency [Fatal]
  - Pulmonary oedema [Unknown]
  - Fungal sepsis [Fatal]
  - Pyrexia [Not Recovered/Not Resolved]
  - Abdominal pain upper [Not Recovered/Not Resolved]
  - Poisoning [Unknown]
  - Pneumonia [Unknown]
  - Condition aggravated [Unknown]
  - Respiratory failure [Fatal]
  - Sepsis [Fatal]
